FAERS Safety Report 5986035-6 (Version None)
Quarter: 2008Q4

REPORT INFORMATION
  Report Type: 
  Country: None (occurrence: None)
  Receive Date: 20081205
  Receipt Date: 20081205
  Transmission Date: 20090506
  Serious: Yes (Hospitalization)
  Sender: FDA-Public Use
  Company Number: None

PATIENT
  Sex: Male
  Weight: 99.7913 kg

DRUGS (2)
  1. PEMETREXED [Suspect]
     Indication: LUNG NEOPLASM MALIGNANT
     Dosage: 1100 MG EVERY 3 WKS IV DRIP
     Route: 041
     Dates: start: 20081117, end: 20081117
  2. CELECOXIB [Suspect]
     Indication: LUNG NEOPLASM MALIGNANT
     Dosage: 600 MG BID PO
     Route: 048
     Dates: start: 20081024, end: 20081117

REACTIONS (4)
  - PERICARDIAL DISEASE [None]
  - PULMONARY EMBOLISM [None]
  - PULMONARY MASS [None]
  - VENOUS THROMBOSIS LIMB [None]
